FAERS Safety Report 8545292-2 (Version None)
Quarter: 2012Q3

REPORT INFORMATION
  Report Type: 
  Country: None (occurrence: None)
  Receive Date: 20120727
  Receipt Date: 20120723
  Transmission Date: 20120928
  Serious: Yes (Hospitalization)
  Sender: FDA-Public Use
  Company Number: US-B.I. PHARMACEUTICALS,INC./RIDGEFIELD-2012-BP-14533BP

PATIENT
  Sex: Male
  Weight: 87.54 kg

DRUGS (7)
  1. ASPIRIN [Concomitant]
     Dosage: 81 MG
  2. AVODART [Concomitant]
     Dosage: 0.5 MG
  3. PRADAXA [Suspect]
     Indication: ATRIAL FIBRILLATION
     Dosage: 300 MG
     Route: 048
     Dates: start: 20120526, end: 20120622
  4. PROPRANOLOL [Concomitant]
     Dosage: 40 MG
  5. OXYBUTYNIN [Concomitant]
     Dosage: 5 MG
  6. NIFEDIPINE [Concomitant]
     Dosage: 60 MG
  7. PRILOSEC [Concomitant]
     Dosage: 10 MG

REACTIONS (1)
  - ARTERIAL HAEMORRHAGE [None]
